FAERS Safety Report 4282636-4 (Version None)
Quarter: 2004Q1

REPORT INFORMATION
  Report Type: 
  Country: None (occurrence: None)
  Receive Date: 20040130
  Receipt Date: 20030106
  Transmission Date: 20041129
  Serious: Yes (Other)
  Sender: FDA-Public Use
  Company Number: US-BRISTOL-MYERS SQUIBB COMPANY-12152252

PATIENT
  Age: 47 Year
  Sex: Female

DRUGS (1)
  1. SERZONE [Suspect]
     Indication: ANTIDEPRESSANT THERAPY
     Dosage: ON 12/21/00,WAS PRESCRIBED 100MG TABLETS.

REACTIONS (3)
  - HEPATIC STEATOSIS [None]
  - HEPATOCELLULAR DAMAGE [None]
  - LIVER FUNCTION TEST ABNORMAL [None]
